FAERS Safety Report 12331441 (Version 1)
Quarter: 2016Q2

REPORT INFORMATION
  Report Type: Spontaneous
  Country: US (occurrence: US)
  Receive Date: 20160504
  Receipt Date: 20160504
  Transmission Date: 20160815
  Serious: Yes (Other)
  Sender: FDA-Public Use
  Company Number: US-SUN PHARMACEUTICAL INDUSTRIES LTD-2016US-115225

PATIENT
  Age: 53 Year
  Sex: Female

DRUGS (8)
  1. MYCOPHENOLATE MOFETIL. [Suspect]
     Active Substance: MYCOPHENOLATE MOFETIL
     Indication: CUTANEOUS SARCOIDOSIS
     Dosage: 4 G, DAILY
     Route: 065
     Dates: end: 200805
  2. MINOCYCLINE [Suspect]
     Active Substance: MINOCYCLINE\MINOCYCLINE HYDROCHLORIDE
     Indication: CUTANEOUS SARCOIDOSIS
     Dosage: UNK
     Route: 065
  3. HYDROXYCHLOROQUINE [Suspect]
     Active Substance: HYDROXYCHLOROQUINE
     Indication: CUTANEOUS SARCOIDOSIS
     Dosage: UNK
     Route: 065
  4. METHOTREXATE [Suspect]
     Active Substance: METHOTREXATE
     Indication: CUTANEOUS SARCOIDOSIS
     Dosage: UNK
     Route: 065
  5. PREDNISONE. [Suspect]
     Active Substance: PREDNISONE
     Indication: CUTANEOUS SARCOIDOSIS
     Dosage: UNK
     Route: 048
     Dates: end: 201111
  6. MYCOPHENOLATE MOFETIL. [Suspect]
     Active Substance: MYCOPHENOLATE MOFETIL
     Indication: CUTANEOUS SARCOIDOSIS
     Dosage: 500 MG, BID
     Route: 065
     Dates: start: 200312
  7. IMIQUIMOD. [Suspect]
     Active Substance: IMIQUIMOD
     Indication: CUTANEOUS SARCOIDOSIS
     Dosage: UNK
     Route: 061
  8. TACROLIMUS. [Suspect]
     Active Substance: TACROLIMUS
     Indication: CUTANEOUS SARCOIDOSIS
     Dosage: UNK
     Route: 061

REACTIONS (3)
  - Diabetes mellitus [Unknown]
  - Osteonecrosis [Unknown]
  - Hypertension [Unknown]
